FAERS Safety Report 7190845-X (Version None)
Quarter: 2010Q4

REPORT INFORMATION
  Report Type: 
  Country: None (occurrence: None)
  Receive Date: 20101222
  Receipt Date: 20101222
  Transmission Date: 20110411
  Serious: Yes (Hospitalization)
  Sender: FDA-Public Use
  Company Number: None

PATIENT
  Sex: Male
  Weight: 73.8 kg

DRUGS (4)
  1. REVLIMID [Suspect]
     Indication: PROSTATE CANCER
     Dosage: 25 MG PO DAILY X 21 DAYS   25 MG QD PO
     Route: 048
     Dates: start: 20100607, end: 20101001
  2. ZOLPIDEM TARTRATE [Concomitant]
  3. PROAIR HFA [Concomitant]
  4. MIRTAZAPINE [Concomitant]

REACTIONS (1)
  - RECTAL ABSCESS [None]
